FAERS Safety Report 4378010-2 (Version None)
Quarter: 2004Q2

REPORT INFORMATION
  Report Type: 
  Country: None (occurrence: None)
  Receive Date: 20040615
  Receipt Date: 20040615
  Transmission Date: 20050107
  Serious: Yes (Other)
  Sender: FDA-Public Use
  Company Number: None

PATIENT
  Age: 53 Year
  Sex: Female
  Weight: 53.5244 kg

DRUGS (7)
  1. AVONEX PREFILLED 30 MCG BIOGEN [Suspect]
     Indication: MULTIPLE SCLEROSIS
     Dosage: 30 MCG WEEKLY IM
     Route: 030
     Dates: start: 20040209, end: 20040329
  2. AVONEX PREFILLED 30 MCG BIOGEN [Suspect]
  3. VALTREX [Concomitant]
  4. ADVAIR DISKUS 100/50 [Concomitant]
  5. NASONEX [Concomitant]
  6. MAXAIR [Concomitant]
  7. ALLEGRA [Concomitant]

REACTIONS (7)
  - CARDIAC DISORDER [None]
  - DYSPNOEA [None]
  - GRANULOMA [None]
  - LUNG DISORDER [None]
  - MASS [None]
  - PERICARDIAL EFFUSION [None]
  - PHARMACEUTICAL PRODUCT COMPLAINT [None]
